FAERS Safety Report 5852995-7 (Version None)
Quarter: 2008Q3

REPORT INFORMATION
  Report Type: 
  Country: None (occurrence: None)
  Receive Date: 20080821
  Receipt Date: 20080814
  Transmission Date: 20090109
  Serious: Yes (Death, Other)
  Sender: FDA-Public Use
  Company Number: BR-ROCHE-581325

PATIENT
  Age: 18 Year
  Sex: Female
  Weight: 55 kg

DRUGS (10)
  1. RIVOTRIL [Suspect]
     Indication: DRUG USE FOR UNKNOWN INDICATION
     Route: 048
     Dates: start: 20080425, end: 20080501
  2. RIVOTRIL [Suspect]
     Route: 048
     Dates: start: 20080501, end: 20080609
  3. DIAZEPAM [Suspect]
     Indication: DRUG USE FOR UNKNOWN INDICATION
     Dosage: DOSAEGE REGIMEN REPORTED AS ^2^
     Route: 042
     Dates: start: 20080501, end: 20080501
  4. DORMONID [Suspect]
     Indication: SLEEP DISORDER THERAPY
     Dosage: START DATE REPORTED AS 2008.
     Route: 048
     Dates: end: 20080609
  5. NEOZINE [Concomitant]
     Route: 048
     Dates: start: 20080425, end: 20080501
  6. NEOZINE [Concomitant]
     Route: 048
     Dates: start: 20080501, end: 20080609
  7. HALDOL [Concomitant]
     Route: 048
     Dates: start: 20080425, end: 20080501
  8. HALDOL [Concomitant]
     Route: 048
     Dates: start: 20080501, end: 20080609
  9. FENERGAN [Concomitant]
     Route: 048
     Dates: start: 20080425, end: 20080501
  10. FENERGAN [Concomitant]
     Route: 048
     Dates: start: 20080501, end: 20080609

REACTIONS (12)
  - ABNORMAL BEHAVIOUR [None]
  - CARDIAC ARREST [None]
  - COORDINATION ABNORMAL [None]
  - DRUG INEFFECTIVE [None]
  - DYSKINESIA [None]
  - HYPOKINESIA [None]
  - ILL-DEFINED DISORDER [None]
  - INSOMNIA [None]
  - MUSCLE CONTRACTURE [None]
  - TACHYPNOEA [None]
  - UNEVALUABLE EVENT [None]
  - URINARY RETENTION [None]
